FAERS Safety Report 14797840 (Version 1)
Quarter: 2018Q2

REPORT INFORMATION
  Report Type: Spontaneous
  Country: CH (occurrence: CH)
  Receive Date: 20180424
  Receipt Date: 20180424
  Transmission Date: 20180711
  Serious: Yes (Other)
  Sender: FDA-Public Use
  Company Number: CH-009507513-1804CHE007678

PATIENT
  Age: 69 Year
  Sex: Female

DRUGS (7)
  1. DOTAREM [Suspect]
     Active Substance: GADOTERATE MEGLUMINE
     Dosage: 12 ML, UNK
     Route: 040
     Dates: start: 20180322, end: 20180322
  2. ACCUPAQUE [Suspect]
     Active Substance: IOHEXOL
     Dosage: 100 ML, UNK
     Route: 040
     Dates: start: 20180322, end: 20180322
  3. PREDNISONE. [Suspect]
     Active Substance: PREDNISONE
     Dosage: 30 MG, QD
     Route: 048
     Dates: start: 20180313
  4. AUGMENTIN [Suspect]
     Active Substance: AMOXICILLIN\CLAVULANATE POTASSIUM
     Dosage: DOSAGE UNKNOWN
     Route: 048
     Dates: start: 201802, end: 20180308
  5. KEYTRUDA [Suspect]
     Active Substance: PEMBROLIZUMAB
     Indication: LUNG ADENOCARCINOMA
     Dosage: 200 MG, Q3W
     Route: 041
     Dates: start: 20180214
  6. KEYTRUDA [Suspect]
     Active Substance: PEMBROLIZUMAB
     Dosage: 200 MG, Q3W
     Route: 041
     Dates: start: 20180307, end: 20180324
  7. PREDNISONE. [Suspect]
     Active Substance: PREDNISONE
     Dosage: 50 MG, QD
     Route: 048
     Dates: end: 20180312

REACTIONS (1)
  - Lichenoid keratosis [Recovered/Resolved]

NARRATIVE: CASE EVENT DATE: 20180324
